FAERS Safety Report 6315411-7 (Version None)
Quarter: 2009Q3

REPORT INFORMATION
  Report Type: 
  Country: None (occurrence: None)
  Receive Date: 20090819
  Receipt Date: 20090818
  Transmission Date: 20100115
  Serious: No
  Sender: FDA-Public Use
  Company Number: US-B.I. PHARMACEUTICALS,INC./RIDGEFIELD-2009-BP-09304BP

PATIENT
  Sex: Male

DRUGS (6)
  1. SPIRIVA [Suspect]
     Indication: CHRONIC OBSTRUCTIVE PULMONARY DISEASE
     Dosage: 18 MCG
     Route: 055
     Dates: start: 20070101
  2. SPIRIVA [Suspect]
     Indication: ASBESTOSIS
  3. ADVAIR HFA [Concomitant]
     Indication: CHRONIC OBSTRUCTIVE PULMONARY DISEASE
     Dates: start: 20070101
  4. PROZAC [Concomitant]
     Indication: ANXIETY
     Dates: start: 19990101
  5. PROZAC [Concomitant]
     Indication: DEPRESSION
  6. SULAR [Concomitant]
     Indication: HYPERTENSION
     Dates: start: 20040101

REACTIONS (2)
  - DEMENTIA ALZHEIMER'S TYPE [None]
  - DYSPNOEA [None]
